FAERS Safety Report 18908006 (Version 1)
Quarter: 2021Q1

REPORT INFORMATION
  Report Type: Spontaneous
  Country: US (occurrence: US)
  Receive Date: 20210218
  Receipt Date: 20210218
  Transmission Date: 20210420
  Serious: Yes (Other)
  Sender: FDA-Public Use
  Company Number: US-ROCHE-2770562

PATIENT
  Sex: Female
  Weight: 94.5 kg

DRUGS (1)
  1. HERCEPTIN [Suspect]
     Active Substance: TRASTUZUMAB
     Indication: BREAST CANCER
     Dosage: ONGOING: UNKNOWN
     Route: 041
     Dates: start: 20210211

REACTIONS (2)
  - Loss of consciousness [Unknown]
  - Dysarthria [Unknown]
